FAERS Safety Report 16442950 (Version 1)
Quarter: 2019Q2

REPORT INFORMATION
  Report Type: Spontaneous
  Country: GB (occurrence: GB)
  Receive Date: 20190617
  Receipt Date: 20190617
  Transmission Date: 20190711
  Serious: Yes (Hospitalization, Disabling, Other)
  Sender: FDA-Public Use
  Company Number: GB-009507513-0403GBR00052

PATIENT
  Age: 50 Year
  Sex: Female

DRUGS (14)
  1. CLOPIDOGREL BISULFATE. [Concomitant]
     Active Substance: CLOPIDOGREL BISULFATE
  2. ATORVASTATIN CALCIUM. [Suspect]
     Active Substance: ATORVASTATIN CALCIUM
     Indication: CORONARY ARTERY DISEASE
     Dosage: 80 MG, QD
     Route: 048
     Dates: start: 20020622, end: 20040123
  3. ATENOLOL. [Concomitant]
     Active Substance: ATENOLOL
  4. DICLOFENAC [Concomitant]
     Active Substance: DICLOFENAC
     Dosage: 150-75
     Dates: start: 2003, end: 20040104
  5. IBUPROFEN. [Concomitant]
     Active Substance: IBUPROFEN
  6. LACTULOSE. [Concomitant]
     Active Substance: LACTULOSE
  7. ACETAMINOPHEN. [Concomitant]
     Active Substance: ACETAMINOPHEN
  8. LEVOTHYROXINE SODIUM. [Concomitant]
     Active Substance: LEVOTHYROXINE SODIUM
  9. TILDIEM [Concomitant]
     Active Substance: DILTIAZEM HYDROCHLORIDE
  10. FUROSEMIDE. [Concomitant]
     Active Substance: FUROSEMIDE
  11. IMDUR [Concomitant]
     Active Substance: ISOSORBIDE MONONITRATE
  12. REMEDEINE [Concomitant]
     Active Substance: ACETAMINOPHEN\DIHYDROCODEINE
  13. DILTIAZEM HYDROCHLORIDE. [Concomitant]
     Active Substance: DILTIAZEM HYDROCHLORIDE
  14. EZETROL [Suspect]
     Active Substance: EZETIMIBE
     Indication: BLOOD CHOLESTEROL INCREASED
     Dosage: 10 MG, QD
     Route: 048
     Dates: start: 20031010, end: 20040123

REACTIONS (4)
  - Hepatitis acute [Recovered/Resolved]
  - Abdominal pain upper [Recovered/Resolved]
  - Vomiting [Recovered/Resolved]
  - Dyspepsia [Recovered/Resolved]

NARRATIVE: CASE EVENT DATE: 20040114
